FAERS Safety Report 17324141 (Version 1)
Quarter: 2020Q1

REPORT INFORMATION
  Report Type: Spontaneous
  Country: US (occurrence: US)
  Receive Date: 20200127
  Receipt Date: 20200127
  Transmission Date: 20200409
  Serious: Yes (Life-Threatening)
  Sender: FDA-Public Use
  Company Number: US-ROCHE-2528441

PATIENT
  Age: 61 Year
  Sex: Female
  Weight: 73.55 kg

DRUGS (4)
  1. KADCYLA [Suspect]
     Active Substance: ADO-TRASTUZUMAB EMTANSINE
     Indication: HER-2 POSITIVE BREAST CANCER
     Route: 042
     Dates: start: 201903
  2. PERJETA [Suspect]
     Active Substance: PERTUZUMAB
     Indication: HER-2 POSITIVE BREAST CANCER
     Route: 065
     Dates: start: 201701
  3. HERCEPTIN [Suspect]
     Active Substance: TRASTUZUMAB
     Indication: HER-2 POSITIVE BREAST CANCER
     Route: 065
     Dates: start: 201701
  4. HYDROCODONE [Concomitant]
     Active Substance: HYDROCODONE
     Route: 048
     Dates: start: 201907

REACTIONS (10)
  - Feeling abnormal [Not Recovered/Not Resolved]
  - Alopecia [Not Recovered/Not Resolved]
  - Lymphoedema [Not Recovered/Not Resolved]
  - Flatulence [Unknown]
  - Procedural pain [Not Recovered/Not Resolved]
  - Diarrhoea [Unknown]
  - Neuropathy peripheral [Not Recovered/Not Resolved]
  - Insomnia [Not Recovered/Not Resolved]
  - Tongue disorder [Not Recovered/Not Resolved]
  - Lymphoma [Unknown]

NARRATIVE: CASE EVENT DATE: 201903
